FAERS Safety Report 6072929-2 (Version None)
Quarter: 2009Q1

REPORT INFORMATION
  Report Type: 
  Country: None (occurrence: None)
  Receive Date: 20090206
  Receipt Date: 20090107
  Transmission Date: 20090719
  Serious: Yes (Hospitalization, Other)
  Sender: FDA-Public Use
  Company Number: 235936J08USA

PATIENT
  Age: 35 Year
  Sex: Female
  Weight: 109 kg

DRUGS (4)
  1. REBIF [Suspect]
     Indication: MULTIPLE SCLEROSIS
     Dosage: 22 MCG, 3 IN 1 WEEKS, SUBCUTANEOUS
     Route: 058
     Dates: start: 20080514, end: 20080606
  2. PROVIGIL [Concomitant]
  3. AMBIEN [Concomitant]
  4. LYRICA [Concomitant]

REACTIONS (5)
  - BLISTER [None]
  - CARDIAC DISORDER [None]
  - HAEMOPTYSIS [None]
  - PRURITUS [None]
  - VOMITING [None]
